FAERS Safety Report 12012194 (Version 1)
Quarter: 2016Q1

REPORT INFORMATION
  Report Type: Report from Study
  Country: US (occurrence: US)
  Receive Date: 20160205
  Receipt Date: 20160205
  Transmission Date: 20160526
  Serious: Yes (Death, Hospitalization, Other)
  Sender: FDA-Public Use
  Company Number: US-JNJFOC-20151207842

PATIENT
  Sex: Male
  Weight: 55 kg

DRUGS (10)
  1. SENOKOT [Concomitant]
     Active Substance: SENNOSIDES
  2. IMBRUVICA [Suspect]
     Active Substance: IBRUTINIB
     Indication: CHRONIC LYMPHOCYTIC LEUKAEMIA
     Route: 048
     Dates: start: 20150919, end: 20151001
  3. ALLOPURINOL. [Concomitant]
     Active Substance: ALLOPURINOL
  4. IMBRUVICA [Suspect]
     Active Substance: IBRUTINIB
     Indication: THERAPY NAIVE
     Route: 048
     Dates: start: 20150919, end: 20151001
  5. VITAMINS NOS [Concomitant]
     Active Substance: VITAMINS
  6. IMBRUVICA [Suspect]
     Active Substance: IBRUTINIB
     Indication: CHRONIC LYMPHOCYTIC LEUKAEMIA
     Route: 048
  7. HYGROTON [Concomitant]
     Active Substance: CHLORTHALIDONE
  8. IMBRUVICA [Suspect]
     Active Substance: IBRUTINIB
     Indication: THERAPY NAIVE
     Route: 048
  9. TYLENOL [Concomitant]
     Active Substance: ACETAMINOPHEN
  10. LOVENOX [Concomitant]
     Active Substance: ENOXAPARIN SODIUM

REACTIONS (11)
  - Hypoxia [Unknown]
  - Atrial fibrillation [Unknown]
  - Aspiration [Unknown]
  - Hypernatraemia [Unknown]
  - General physical health deterioration [Unknown]
  - Disease progression [Fatal]
  - Pulmonary oedema [Unknown]
  - Colitis [Unknown]
  - Pulmonary sepsis [Unknown]
  - Splenic rupture [Unknown]
  - Injury [Unknown]

NARRATIVE: CASE EVENT DATE: 2015
